FAERS Safety Report 4644535-5 (Version None)
Quarter: 2005Q2

REPORT INFORMATION
  Report Type: 
  Country: None (occurrence: None)
  Receive Date: 20050425
  Receipt Date: 20050425
  Transmission Date: 20051028
  Serious: Yes (Life-Threatening, Hospitalization)
  Sender: FDA-Public Use
  Company Number: None

PATIENT
  Age: 45 Year
  Sex: Female

DRUGS (2)
  1. LISINOPRIL [Suspect]
     Indication: HYPERTENSION
     Dosage: 40 MG / ONCE DAILY
     Dates: start: 20040503, end: 20050413
  2. ZYRTEC [Concomitant]

REACTIONS (1)
  - ANGIONEUROTIC OEDEMA [None]
